FAERS Safety Report 7630019-9 (Version None)
Quarter: 2011Q3

REPORT INFORMATION
  Report Type: 
  Country: None (occurrence: None)
  Receive Date: 20110722
  Receipt Date: 20110707
  Transmission Date: 20111222
  Serious: Yes (Disabling, Other)
  Sender: FDA-Public Use
  Company Number: US-ENDO PHARMACEUTICALS INC.-ENDC20110066

PATIENT
  Sex: Female
  Weight: 68.1 kg

DRUGS (4)
  1. OXYCODONE AND ACETAMINOPHEN [Suspect]
     Indication: PAIN
     Dosage: 5/325 MG
     Route: 048
  2. ABILIFY [Suspect]
     Dosage: UNK
     Route: 065
  3. ABILIFY [Suspect]
     Dosage: 1/2 TABLET
     Route: 065
  4. OXYCODONE AND ACETAMINOPHEN [Suspect]
     Indication: PAIN
     Dosage: 10/325 MG
     Route: 048

REACTIONS (10)
  - ABDOMINAL DISCOMFORT [None]
  - HEADACHE [None]
  - CHROMATURIA [None]
  - DIZZINESS [None]
  - DRUG INEFFECTIVE [None]
  - GAIT DISTURBANCE [None]
  - URINE ODOUR ABNORMAL [None]
  - DIARRHOEA [None]
  - FALL [None]
  - WEIGHT DECREASED [None]
